FAERS Safety Report 6673449-4 (Version None)
Quarter: 2010Q1

REPORT INFORMATION
  Report Type: 
  Country: None (occurrence: None)
  Receive Date: 20100329
  Receipt Date: 20091021
  Transmission Date: 20100710
  Serious: Yes (Other)
  Sender: FDA-Public Use
  Company Number: 2009267535

PATIENT
  Age: 24 Year
  Sex: Male
  Weight: 101.6 kg

DRUGS (3)
  1. GEODON [Suspect]
     Indication: BIPOLAR DISORDER
     Dosage: 80 MG, 2X/DAY
     Dates: start: 20081117
  2. GEODON [Suspect]
     Indication: SCHIZOAFFECTIVE DISORDER
     Dosage: 80 MG, 2X/DAY
     Dates: start: 20081117
  3. COGENTIN [Concomitant]

REACTIONS (5)
  - ANXIETY [None]
  - NIGHTMARE [None]
  - PARALYSIS [None]
  - SPEECH DISORDER [None]
  - THINKING ABNORMAL [None]
